FAERS Safety Report 16987277 (Version 3)
Quarter: 2020Q1

REPORT INFORMATION
  Report Type: Spontaneous
  Country: DE (occurrence: DE)
  Receive Date: 20191102
  Receipt Date: 20200325
  Transmission Date: 20200409
  Serious: Yes (Hospitalization, Other)
  Sender: FDA-Public Use
  Company Number: NVSC2019DE021648

PATIENT
  Age: 51 Year
  Sex: Male
  Weight: 120 kg

DRUGS (3)
  1. COSENTYX [Suspect]
     Active Substance: SECUKINUMAB
     Indication: PSORIASIS
     Dosage: 300 MG, UNKNOWN
     Route: 058
     Dates: start: 20150905
  2. ACTILYSE [Concomitant]
     Active Substance: ALTEPLASE
     Indication: EMBOLISM
  3. ACTILYSE [Concomitant]
     Active Substance: ALTEPLASE
     Indication: THROMBOSIS
     Route: 065

REACTIONS (6)
  - Cardiometabolic syndrome [Not Recovered/Not Resolved]
  - Lower limb artery perforation [Unknown]
  - Peripheral ischaemia [Unknown]
  - Peripheral artery aneurysm [Unknown]
  - Peripheral artery thrombosis [Unknown]
  - Compartment syndrome [Recovered/Resolved]

NARRATIVE: CASE EVENT DATE: 201907
